FAERS Safety Report 4361084-2 (Version None)
Quarter: 2004Q2

REPORT INFORMATION
  Report Type: 
  Country: None (occurrence: None)
  Receive Date: 20040520
  Receipt Date: 20040322
  Transmission Date: 20050107
  Serious: Yes (Hospitalization)
  Sender: FDA-Public Use
  Company Number: US-ROCHE-362229

PATIENT
  Age: 48 Year
  Sex: Male
  Weight: 110 kg

DRUGS (4)
  1. CAPECITABINE [Suspect]
     Dosage: TWICE DAILY ON DAYS 1-15 EVERY 21 DAYS.
     Route: 048
     Dates: start: 20040311, end: 20040311
  2. BEVACIZUMAB [Suspect]
     Route: 042
     Dates: start: 20040309, end: 20040309
  3. OXALIPLATIN [Suspect]
     Route: 042
     Dates: start: 20040309, end: 20040309
  4. ONDANSETRON [Concomitant]
     Dates: start: 20040309

REACTIONS (6)
  - HEPATIC FIBROSIS [None]
  - HEPATIC STEATOSIS [None]
  - HEPATITIS GRANULOMATOUS [None]
  - HEPATOCELLULAR DAMAGE [None]
  - INFECTION [None]
  - LYMPHADENOPATHY MEDIASTINAL [None]
